FAERS Safety Report 5752638-7 (Version None)
Quarter: 2008Q2

REPORT INFORMATION
  Report Type: 
  Country: None (occurrence: None)
  Receive Date: 20080529
  Receipt Date: 20080526
  Transmission Date: 20081010
  Serious: Yes (Hospitalization)
  Sender: FDA-Public Use
  Company Number: IT-ASTRAZENECA-2008SE02668

PATIENT
  Age: 23810 Day
  Sex: Male

DRUGS (6)
  1. MERREM [Suspect]
     Indication: CHOLECYSTITIS ACUTE
     Route: 042
     Dates: start: 20080416, end: 20080428
  2. REPAGLINIDE [Suspect]
     Indication: DIABETES MELLITUS
     Route: 048
     Dates: start: 20080420, end: 20080420
  3. REPAGLINIDE [Suspect]
     Route: 048
     Dates: start: 20080421, end: 20080423
  4. HEPARIN [Concomitant]
     Dosage: 1 ML SQ
     Route: 058
  5. CORDARONE [Concomitant]
     Dosage: 200 MG
  6. NORVASC [Concomitant]
     Dosage: 10 MG PO
     Route: 048

REACTIONS (3)
  - DEHYDRATION [None]
  - DIARRHOEA [None]
  - RENAL FAILURE ACUTE [None]
